FAERS Safety Report 8042619-5 (Version None)
Quarter: 2012Q1

REPORT INFORMATION
  Report Type: 
  Country: None (occurrence: None)
  Receive Date: 20120112
  Receipt Date: 20120109
  Transmission Date: 20120608
  Serious: No
  Sender: FDA-Public Use
  Company Number: US-PFIZER INC-2012007045

PATIENT
  Sex: Female

DRUGS (8)
  1. LIPITOR [Suspect]
     Dosage: UNK
     Route: 048
  2. CYANOCOBALAMIN [Interacting]
     Indication: VITAMIN SUPPLEMENTATION
     Dosage: ONE TABLET DAILY
     Route: 048
  3. LEVOTHROID [Concomitant]
     Dosage: UNK
  4. OMEPRAZOLE [Concomitant]
     Dosage: UNK
  5. ATENOLOL [Concomitant]
     Dosage: UNK
  6. ISOSORBIDE MONONITRATE [Concomitant]
     Dosage: UNK
  7. NITROGLYCERIN [Interacting]
     Dosage: UNK
  8. ALLOPURINOL [Concomitant]
     Dosage: UNK

REACTIONS (5)
  - DRUG INTERACTION [None]
  - RENAL FUNCTION TEST ABNORMAL [None]
  - MUSCULAR WEAKNESS [None]
  - BACK PAIN [None]
  - DIARRHOEA [None]
